FAERS Safety Report 8138480-0 (Version None)
Quarter: 2012Q1

REPORT INFORMATION
  Report Type: 
  Country: None (occurrence: None)
  Receive Date: 20120215
  Receipt Date: 20120210
  Transmission Date: 20120608
  Serious: Yes (Disabling)
  Sender: FDA-Public Use
  Company Number: US-PFIZER INC-2012037249

PATIENT
  Sex: Male
  Weight: 100 kg

DRUGS (4)
  1. OXYCODONE [Concomitant]
     Indication: BACK PAIN
     Dosage: UNK
  2. EFFEXOR XR [Suspect]
     Indication: BIPOLAR DISORDER
     Dosage: 300 MG, DAILY
     Route: 048
     Dates: start: 20020101, end: 20120208
  3. LAMICTAL [Concomitant]
     Indication: BIPOLAR DISORDER
     Dosage: 400 MG, DAILY
  4. LAMICTAL [Concomitant]
     Indication: MOOD SWINGS

REACTIONS (1)
  - ROAD TRAFFIC ACCIDENT [None]
